FAERS Safety Report 23300851 (Version 1)
Quarter: 2023Q4

REPORT INFORMATION
  Report Type: Spontaneous
  Country: US (occurrence: US)
  Receive Date: 20231215
  Receipt Date: 20231215
  Transmission Date: 20240109
  Serious: No
  Sender: FDA-Public Use
  Company Number: US-002147023-NVSC2023US266529

PATIENT
  Age: 78 Year
  Sex: Male

DRUGS (4)
  1. EVEROLIMUS [Suspect]
     Active Substance: EVEROLIMUS
     Indication: Renal cancer
     Dosage: 5 MG, QD
     Route: 065
  2. EVEROLIMUS [Suspect]
     Active Substance: EVEROLIMUS
     Dosage: 5 MG, (EVERY OTHER DAY)
     Route: 065
  3. LENVIMA [Suspect]
     Active Substance: LENVATINIB
     Indication: Renal cancer
     Dosage: 18 MG
     Route: 048
     Dates: start: 202310
  4. LENVIMA [Suspect]
     Active Substance: LENVATINIB
     Dosage: 10 MG, QD
     Route: 048

REACTIONS (2)
  - Hypertension [Unknown]
  - Blood glucose increased [Unknown]
